FAERS Safety Report 24590786 (Version 1)
Quarter: 2024Q4

REPORT INFORMATION
  Report Type: Spontaneous
  Country: US (occurrence: US)
  Receive Date: 20241107
  Receipt Date: 20241107
  Transmission Date: 20250114
  Serious: No
  Sender: MERCK
  Company Number: US-009507513-2411USA001327

PATIENT
  Sex: Male
  Weight: 71.7 kg

DRUGS (14)
  1. WINREVAIR [Suspect]
     Active Substance: SOTATERCEPT-CSRK
     Dosage: UNK
  2. ORENITRAM [Suspect]
     Active Substance: TREPROSTINIL
     Indication: Pulmonary arterial hypertension
     Dosage: 0.25 MILLIGRAM, TID
     Route: 048
  3. ORENITRAM [Suspect]
     Active Substance: TREPROSTINIL
     Dosage: 2.5 MILLIGRAM, TID
     Route: 048
  4. ORENITRAM [Suspect]
     Active Substance: TREPROSTINIL
     Dosage: 5 MILLIGRAM, TID
     Route: 048
  5. ORENITRAM [Suspect]
     Active Substance: TREPROSTINIL
     Dosage: 8 MILLIGRAM, TID
     Route: 048
  6. FUROSEMIDE [Concomitant]
     Active Substance: FUROSEMIDE
  7. FLOMAX [Concomitant]
     Active Substance: TAMSULOSIN HYDROCHLORIDE
  8. OPSUMIT [Concomitant]
     Active Substance: MACITENTAN
  9. SILDENAFIL CITRATE [Concomitant]
     Active Substance: SILDENAFIL CITRATE
  10. FINASTERIDE [Concomitant]
     Active Substance: FINASTERIDE
  11. OXYGEN [Concomitant]
     Active Substance: OXYGEN
  12. GABAPENTIN [Concomitant]
     Active Substance: GABAPENTIN
  13. LOPERAMIDE [Concomitant]
     Active Substance: LOPERAMIDE
  14. OMEPRAZOLE\SODIUM BICARBONATE [Concomitant]
     Active Substance: OMEPRAZOLE\SODIUM BICARBONATE

REACTIONS (2)
  - Iron deficiency [Unknown]
  - Vitamin B12 deficiency [Unknown]
